FAERS Safety Report 13640278 (Version 6)
Quarter: 2021Q2

REPORT INFORMATION
  Report Type: Spontaneous
  Country: US (occurrence: US)
  Receive Date: 20170610
  Receipt Date: 20210628
  Transmission Date: 20210716
  Serious: No
  Sender: FDA-Public Use
  Company Number: PHEH2017US017665

PATIENT
  Sex: Female

DRUGS (2)
  1. ZOFRAN ODT [Suspect]
     Active Substance: ONDANSETRON HYDROCHLORIDE
     Indication: PRODUCT USED FOR UNKNOWN INDICATION
     Route: 048
  2. ONDANSETRON PLIVA [Suspect]
     Active Substance: ONDANSETRON HYDROCHLORIDE
     Indication: MORNING SICKNESS
     Dosage: 1 DF, EVERY 4 TO 6 HOURS
     Route: 048
     Dates: start: 20070814, end: 200709

REACTIONS (10)
  - Emotional distress [Unknown]
  - Back pain [Unknown]
  - Pain [Unknown]
  - Injury [Unknown]
  - Product use issue [Unknown]
  - Depression [Unknown]
  - Abdominal pain upper [Unknown]
  - Constipation [Unknown]
  - Maternal exposure during pregnancy [Unknown]
  - Anxiety [Unknown]
